FAERS Safety Report 10213923 (Version 1)
Quarter: 2014Q2

REPORT INFORMATION
  Report Type: Spontaneous
  Country: US (occurrence: None)
  Receive Date: 20140602
  Receipt Date: 20140602
  Transmission Date: 20141212
  Serious: No
  Sender: FDA-Public Use
  Company Number: None

PATIENT
  Age: 22 Year
  Sex: Female
  Weight: 46.72 kg

DRUGS (1)
  1. KENALOG-10 [Suspect]
     Indication: RASH

REACTIONS (1)
  - Injection site mass [None]
